FAERS Safety Report 5928446-0 (Version None)
Quarter: 2008Q4

REPORT INFORMATION
  Report Type: 
  Country: None (occurrence: None)
  Receive Date: 20081023
  Receipt Date: 20081013
  Transmission Date: 20090506
  Serious: Yes (Other)
  Sender: FDA-Public Use
  Company Number: FR-PFIZER INC-2008086565

PATIENT
  Age: 6 Year
  Sex: Male

DRUGS (1)
  1. GENOTONORM [Suspect]

REACTIONS (3)
  - CELL DEATH [None]
  - MUSCLE DISORDER [None]
  - MUSCLE ENZYME INCREASED [None]
